FAERS Safety Report 6666474-0 (Version None)
Quarter: 2010Q2

REPORT INFORMATION
  Report Type: 
  Country: None (occurrence: None)
  Receive Date: 20100402
  Receipt Date: 20100325
  Transmission Date: 20101027
  Serious: Yes (Hospitalization, Other)
  Sender: FDA-Public Use
  Company Number: US-ABBOTT-10P-163-0635091-00

PATIENT
  Sex: Female
  Weight: 64.468 kg

DRUGS (5)
  1. KALETRA [Suspect]
     Indication: HIV INFECTION
     Route: 048
     Dates: start: 20060101
  2. TYLENOL-500 [Suspect]
     Indication: MIGRAINE
     Dates: start: 20091001
  3. FERROUS SULFATE TAB [Concomitant]
     Indication: MINERAL SUPPLEMENTATION
  4. TRUVADA [Concomitant]
     Indication: HIV INFECTION
  5. VALTREX [Concomitant]
     Indication: HIV INFECTION

REACTIONS (7)
  - APPENDICITIS [None]
  - CHOLELITHIASIS [None]
  - GASTRIC ULCER [None]
  - MIGRAINE [None]
  - PNEUMONIA [None]
  - VOMITING [None]
  - WEIGHT DECREASED [None]
